FAERS Safety Report 12736742 (Version 1)
Quarter: 2016Q3

REPORT INFORMATION
  Report Type: Report from Study
  Country: BR (occurrence: BR)
  Receive Date: 20160913
  Receipt Date: 20160913
  Transmission Date: 20161109
  Serious: Yes (Death, Hospitalization)
  Sender: FDA-Public Use
  Company Number: PHHY2016BR125024

PATIENT
  Sex: Female
  Weight: 60 kg

DRUGS (4)
  1. EXELON [Suspect]
     Active Substance: RIVASTIGMINE TARTRATE
     Indication: DEMENTIA ALZHEIMER^S TYPE
     Dosage: SMALLER DOSE
     Route: 048
  2. EXELON [Suspect]
     Active Substance: RIVASTIGMINE TARTRATE
     Indication: DEMENTIA ALZHEIMER^S TYPE
     Dosage: 1.5 OT, UNK
     Route: 048
  3. EXELON [Suspect]
     Active Substance: RIVASTIGMINE TARTRATE
     Indication: DEMENTIA ALZHEIMER^S TYPE
     Dosage: 4.6 MG, QD PATCH 5 (CM2)
     Route: 062
  4. EXELON [Suspect]
     Active Substance: RIVASTIGMINE TARTRATE
     Dosage: 3 TABLETS
     Route: 048

REACTIONS (7)
  - Pneumonia [Unknown]
  - Renal failure [Unknown]
  - Drug ineffective [Unknown]
  - Weight decreased [Unknown]
  - Multiple organ dysfunction syndrome [Fatal]
  - Respiratory failure [Unknown]
  - Dementia Alzheimer^s type [Unknown]
